FAERS Safety Report 4733662-X (Version None)
Quarter: 2005Q3

REPORT INFORMATION
  Report Type: 
  Country: None (occurrence: None)
  Receive Date: 20050729
  Receipt Date: 20050523
  Transmission Date: 20060218
  Serious: No
  Sender: FDA-Public Use
  Company Number: COT_0079_2005

PATIENT
  Age: 77 Year
  Sex: Female
  Weight: 63.5036 kg

DRUGS (9)
  1. VENTAVIS [Suspect]
     Indication: PULMONARY HYPERTENSION
     Dosage: 45 MCG DAILY IH
     Route: 055
     Dates: start: 20050520
  2. VENTAVIS [Suspect]
  3. METFORMIN [Concomitant]
  4. UNICAP-M [Concomitant]
  5. TRIAMTERENE AND HYDROCHLOROTHIAZIDE [Concomitant]
  6. TRACLEER [Concomitant]
  7. DIGOXIN [Concomitant]
  8. TYLENOL (CAPLET) [Concomitant]
  9. COLCHICINE [Concomitant]

REACTIONS (4)
  - BLOOD PRESSURE DECREASED [None]
  - FATIGUE [None]
  - MALAISE [None]
  - STOMACH DISCOMFORT [None]
